FAERS Safety Report 22751900 (Version 7)
Quarter: 2025Q3

REPORT INFORMATION
  Report Type: Report from Study
  Country: US (occurrence: US)
  Receive Date: 20230726
  Receipt Date: 20250923
  Transmission Date: 20251020
  Serious: Yes (Hospitalization)
  Sender: AGIOS PHARMACEUTICALS
  Company Number: US-AGIOS-2307US03424

PATIENT
  Sex: Male

DRUGS (1)
  1. MITAPIVAT [Suspect]
     Active Substance: MITAPIVAT
     Indication: Haemolytic anaemia
     Route: 048
     Dates: start: 20221020

REACTIONS (18)
  - Back pain [Unknown]
  - Abdominal distension [Unknown]
  - Abdominal pain lower [Unknown]
  - Paraesthesia [Recovered/Resolved]
  - Peripheral coldness [Recovered/Resolved]
  - Dry mouth [Unknown]
  - Malaise [Unknown]
  - Hypertension [Unknown]
  - Sputum discoloured [Unknown]
  - Nasal congestion [Unknown]
  - Thirst [Unknown]
  - Dehydration [Unknown]
  - Fatigue [Unknown]
  - Blood creatinine increased [Unknown]
  - Haemoglobin abnormal [Unknown]
  - Off label use [Unknown]
  - Malaise [Unknown]
  - Product dose omission issue [Unknown]
